FAERS Safety Report 25722845 (Version 2)
Quarter: 2025Q4

REPORT INFORMATION
  Report Type: Spontaneous
  Country: US (occurrence: US)
  Receive Date: 20250825
  Receipt Date: 20251020
  Transmission Date: 20260118
  Serious: No
  Sender: CALLIDITAS THERAPEUTICS AB
  Company Number: US-Calliditas-2025CAL02480

PATIENT
  Age: 32 Year
  Sex: Female

DRUGS (7)
  1. TARPEYO [Suspect]
     Active Substance: BUDESONIDE
     Indication: IgA nephropathy
     Dosage: 16MG (4MG CAPSULES) ONCE DAILY
     Route: 048
     Dates: start: 20241223, end: 202510
  2. CHOLECALCIFEROL [Concomitant]
     Active Substance: CHOLECALCIFEROL
  3. ESCITALOPRAM [Concomitant]
     Active Substance: ESCITALOPRAM OXALATE
  4. FISH OIL [Concomitant]
     Active Substance: FISH OIL
  5. LOSARTAN [Concomitant]
     Active Substance: LOSARTAN
  6. METOPROLOL [Concomitant]
     Active Substance: METOPROLOL
  7. PARAGARD T 380A [Concomitant]
     Active Substance: COPPER

REACTIONS (6)
  - Blood pressure increased [Recovered/Resolved]
  - Skin striae [Unknown]
  - Erythema [Recovered/Resolved]
  - Swelling face [Unknown]
  - Blood cholesterol increased [Unknown]
  - Alopecia [Unknown]

NARRATIVE: CASE EVENT DATE: 20250501
